FAERS Safety Report 15331720 (Version 3)
Quarter: 2020Q4

REPORT INFORMATION
  Report Type: Spontaneous
  Country: US (occurrence: US)
  Receive Date: 20180829
  Receipt Date: 20201130
  Transmission Date: 20210113
  Serious: Yes (Other)
  Sender: FDA-Public Use
  Company Number: US-PFIZER INC-2018345546

PATIENT
  Age: 55 Year
  Sex: Male
  Weight: 95 kg

DRUGS (17)
  1. DIGOXIN. [Concomitant]
     Active Substance: DIGOXIN
     Indication: MYOCARDIAL INFARCTION
  2. FUROSEMIDE. [Concomitant]
     Active Substance: FUROSEMIDE
     Indication: CARDIAC FAILURE CONGESTIVE
     Dosage: 40 MG, 1X/DAY
  3. FUROSEMIDE. [Concomitant]
     Active Substance: FUROSEMIDE
     Indication: MYOCARDIAL INFARCTION
     Dosage: UNK
     Route: 042
  4. NITROGLYCERIN. [Suspect]
     Active Substance: NITROGLYCERIN
     Indication: MYOCARDIAL INFARCTION
     Dosage: UNK, (REQUIRED AT 16-45 UG/MIN)
     Route: 042
  5. NIFEDIPINE. [Concomitant]
     Active Substance: NIFEDIPINE
     Indication: MYOCARDIAL INFARCTION
  6. DIGOXIN. [Concomitant]
     Active Substance: DIGOXIN
     Indication: CARDIAC FAILURE CONGESTIVE
     Dosage: 0.25 MG, 1X/DAY
  7. FENTANYL. [Concomitant]
     Active Substance: FENTANYL
     Indication: ANAESTHESIA
     Dosage: 4 MG, UNK
  8. PANCURONIUM [Concomitant]
     Active Substance: PANCURONIUM
     Indication: ANAESTHESIA
     Dosage: 20 MG, UNK
  9. OXYGEN. [Concomitant]
     Active Substance: OXYGEN
     Dosage: UNK
  10. NITROPRUSSIDE [Concomitant]
     Active Substance: NITROPRUSSIDE
     Indication: MYOCARDIAL INFARCTION
  11. ISOSORBIDE DINITRATE. [Concomitant]
     Active Substance: ISOSORBIDE DINITRATE
     Indication: CARDIAC FAILURE CONGESTIVE
     Dosage: 10 MG, 4X/DAY
  12. NITROGLYCERIN. [Suspect]
     Active Substance: NITROGLYCERIN
     Indication: CARDIAC FAILURE CONGESTIVE
     Dosage: UNK, (THROUGHOUT THE PROCEDURE AT A RATE OF 33-67 PG/MIN)
     Route: 042
  13. NITROPRUSSIDE [Concomitant]
     Active Substance: NITROPRUSSIDE
     Indication: CARDIAC FAILURE CONGESTIVE
     Dosage: UNK, (AT 16-45 UG/MIN )
  14. NIFEDIPINE. [Concomitant]
     Active Substance: NIFEDIPINE
     Indication: CARDIAC FAILURE CONGESTIVE
     Dosage: 10 MG, 4X/DAY
  15. DIAZEPAM. [Concomitant]
     Active Substance: DIAZEPAM
     Indication: ANAESTHESIA
     Dosage: 10 MG, UNK
  16. ISOSORBIDE DINITRATE. [Concomitant]
     Active Substance: ISOSORBIDE DINITRATE
     Indication: MYOCARDIAL INFARCTION
  17. FUROSEMIDE. [Concomitant]
     Active Substance: FUROSEMIDE
     Dosage: UNK, (ADDITIONAL DOSES)
     Route: 042

REACTIONS (3)
  - Methaemoglobinaemia [Recovering/Resolving]
  - Pulmonary congestion [Recovered/Resolved]
  - Respiratory distress [Recovered/Resolved]
